FAERS Safety Report 15660477 (Version 1)
Quarter: 2018Q4

REPORT INFORMATION
  Report Type: Spontaneous
  Country: CN (occurrence: CN)
  Receive Date: 20181127
  Receipt Date: 20181127
  Transmission Date: 20190205
  Serious: Yes (Other)
  Sender: FDA-Public Use
  Company Number: CN-GLAXOSMITHKLINE-CN2018GSK212541

PATIENT

DRUGS (3)
  1. ENTECAVIR. [Suspect]
     Active Substance: ENTECAVIR
     Indication: CHRONIC HEPATITIS B
     Dosage: UNK
  2. VIREAD [Suspect]
     Active Substance: TENOFOVIR DISOPROXIL FUMARATE
     Indication: CHRONIC HEPATITIS B
     Dosage: UNK
  3. LAMIVUDINE. [Suspect]
     Active Substance: LAMIVUDINE
     Indication: CHRONIC HEPATITIS B
     Dosage: UNK

REACTIONS (5)
  - Renal impairment [Unknown]
  - Blood creatinine increased [Unknown]
  - Drug resistance [Unknown]
  - Myocardial necrosis marker increased [Unknown]
  - Hepatic function abnormal [Unknown]
